FAERS Safety Report 5040812-7 (Version None)
Quarter: 2006Q2

REPORT INFORMATION
  Report Type: 
  Country: None (occurrence: None)
  Receive Date: 20060629
  Receipt Date: 20060629
  Transmission Date: 20061013
  Serious: No
  Sender: FDA-Public Use
  Company Number: None

PATIENT
  Sex: Male
  Weight: 59.4212 kg

DRUGS (5)
  1. OMEPRAZOLE [Suspect]
     Indication: GASTROOESOPHAGEAL REFLUX DISEASE
     Dosage: 40MG  Q DAY   PO
     Route: 048
     Dates: start: 20060216, end: 20060302
  2. GATIFLOXACIN [Concomitant]
  3. LISINOPRIL [Concomitant]
  4. METFORMIN HYDROCHLORIDE [Concomitant]
  5. QUETIAPINE FUMARATE [Concomitant]

REACTIONS (2)
  - DIZZINESS [None]
  - DRUG THERAPY CHANGED [None]
